FAERS Safety Report 9722973 (Version 2)
Quarter: 2014Q4

REPORT INFORMATION
  Report Type: Spontaneous
  Country: US (occurrence: None)
  Receive Date: 20131126
  Receipt Date: 20141023
  Transmission Date: 20150529
  Serious: Yes (Hospitalization, Other)
  Sender: FDA-Public Use
  Company Number: 2013-US-003047

PATIENT
  Age: 29 Year
  Sex: Female
  Weight: 49 kg

DRUGS (3)
  1. XYREM [Suspect]
     Active Substance: SODIUM OXYBATE
     Indication: NARCOLEPSY
     Route: 048
     Dates: start: 201310, end: 2013
  2. NUVIGIL [Concomitant]
     Active Substance: ARMODAFINIL
  3. XYREM [Suspect]
     Active Substance: SODIUM OXYBATE
     Indication: CATAPLEXY
     Route: 048
     Dates: start: 201310, end: 2013

REACTIONS (13)
  - Psychotic disorder [None]
  - Mania [None]
  - Abnormal behaviour [None]
  - Hallucination [None]
  - Musculoskeletal stiffness [None]
  - Self esteem decreased [None]
  - Unevaluable event [None]
  - Screaming [None]
  - Weight decreased [None]
  - Decreased appetite [None]
  - Schizophrenia [None]
  - Insomnia [None]
  - Pain [None]

NARRATIVE: CASE EVENT DATE: 2013
